FAERS Safety Report 5010545-1 (Version None)
Quarter: 2006Q2

REPORT INFORMATION
  Report Type: 
  Country: None (occurrence: None)
  Receive Date: 20060525
  Receipt Date: 20060518
  Transmission Date: 20061013
  Serious: Yes (Hospitalization)
  Sender: FDA-Public Use
  Company Number: US-JNJFOC-20060504149

PATIENT
  Sex: Female

DRUGS (8)
  1. REMICADE [Suspect]
     Indication: RHEUMATOID ARTHRITIS
     Route: 042
  2. LEVOTHYROXINE SODIUM [Concomitant]
  3. XANAX [Concomitant]
  4. LABETALOL [Concomitant]
  5. VICODIN [Concomitant]
  6. VICODIN [Concomitant]
  7. DURAGESIC-100 [Concomitant]
  8. SENACOT [Concomitant]

REACTIONS (1)
  - PERIPHERAL VASCULAR DISORDER [None]
